FAERS Safety Report 9038895 (Version 1)
Quarter: 2013Q1

REPORT INFORMATION
  Report Type: Spontaneous
  Country: US (occurrence: None)
  Receive Date: 20130123
  Receipt Date: 20130123
  Transmission Date: 20140127
  Serious: Yes (Life-Threatening)
  Sender: FDA-Public Use
  Company Number: None

PATIENT
  Age: 74 Year
  Sex: Female
  Weight: 49.9 kg

DRUGS (1)
  1. WELCHOL [Suspect]

REACTIONS (6)
  - Chest pain [None]
  - Bone pain [None]
  - Dysphagia [None]
  - Dizziness [None]
  - Fall [None]
  - Arthropathy [None]
